FAERS Safety Report 6176043-7 (Version None)
Quarter: 2009Q2

REPORT INFORMATION
  Report Type: 
  Country: None (occurrence: None)
  Receive Date: 20090501
  Receipt Date: 20090423
  Transmission Date: 20091009
  Serious: Yes (Other)
  Sender: FDA-Public Use
  Company Number: NL-ROCHE-629502

PATIENT
  Age: 47 Year
  Sex: Female

DRUGS (4)
  1. CAPECITABINE [Suspect]
     Route: 065
  2. TRASTUZUMAB [Suspect]
     Route: 065
  3. TRASTUZUMAB [Suspect]
     Route: 065
  4. DOCETAXEL [Suspect]
     Route: 065

REACTIONS (3)
  - CARDIOMYOPATHY [None]
  - METASTASES TO CENTRAL NERVOUS SYSTEM [None]
  - METASTASIS [None]
